FAERS Safety Report 7550074-4 (Version None)
Quarter: 2011Q2

REPORT INFORMATION
  Report Type: 
  Country: None (occurrence: None)
  Receive Date: 20110615
  Receipt Date: 20110609
  Transmission Date: 20111010
  Serious: Yes (Hospitalization, Other)
  Sender: FDA-Public Use
  Company Number: NZ-PFIZER INC-2011079621

PATIENT
  Age: 74 Year
  Sex: Male

DRUGS (4)
  1. LATANOPROST [Suspect]
     Dosage: 1 GTT, 1X/DAY (50 UG OCULAR DROPS)
     Route: 047
     Dates: start: 20110409, end: 20110409
  2. ACCUPRIL [Concomitant]
     Indication: HYPERTENSION
     Dosage: 20 MG, 1X/DAY
     Route: 048
     Dates: start: 20020227
  3. ASPIRIN [Concomitant]
     Indication: CARDIOVASCULAR EVENT PROPHYLAXIS
     Dosage: 100 MG, 1X/DAY
     Route: 048
     Dates: start: 20020227
  4. LATANOPROST [Suspect]
     Indication: GLAUCOMA
     Dosage: UNK

REACTIONS (5)
  - EYE PAIN [None]
  - CONJUNCTIVITIS [None]
  - VISUAL ACUITY REDUCED [None]
  - OCULAR HYPERAEMIA [None]
  - PHOTOPHOBIA [None]
